FAERS Safety Report 7486386-2 (Version None)
Quarter: 2011Q2

REPORT INFORMATION
  Report Type: 
  Country: None (occurrence: None)
  Receive Date: 20110517
  Receipt Date: 20110403
  Transmission Date: 20111010
  Serious: No
  Sender: FDA-Public Use
  Company Number: US-NOVEN-11US002175

PATIENT
  Sex: Male
  Weight: 18.141 kg

DRUGS (1)
  1. DAYTRANA [Suspect]
     Indication: ATTENTION DEFICIT/HYPERACTIVITY DISORDER
     Dosage: 10 MG, QD
     Route: 062
     Dates: start: 20110403, end: 20110403

REACTIONS (6)
  - RESTLESSNESS [None]
  - VOMITING [None]
  - ASTHENIA [None]
  - OFF LABEL USE [None]
  - DRUG PRESCRIBING ERROR [None]
  - IRRITABILITY [None]
